FAERS Safety Report 5025219-0 (Version None)
Quarter: 2006Q2

REPORT INFORMATION
  Report Type: 
  Country: None (occurrence: None)
  Receive Date: 20060426
  Receipt Date: 20060216
  Transmission Date: 20061013
  Serious: Yes (Other)
  Sender: FDA-Public Use
  Company Number: 2006015058

PATIENT
  Age: 39 Year
  Sex: Female
  Weight: 99.7913 kg

DRUGS (8)
  1. LYRICA [Suspect]
     Indication: POST HERPETIC NEURALGIA
     Dosage: 150 MG (50 MG,3 IN 1 D),ORAL
     Route: 048
     Dates: start: 20060119, end: 20060207
  2. ATENOLOL [Concomitant]
  3. TRAMADOL HCL [Concomitant]
  4. AMBIEN [Concomitant]
  5. CYMBALTA [Concomitant]
  6. XANAX [Concomitant]
  7. VOLTAREM (DICLOFENAC SODIUM) [Concomitant]
  8. PRILOSEC [Concomitant]

REACTIONS (3)
  - CONSTIPATION [None]
  - GALACTORRHOEA [None]
  - OLIGOMENORRHOEA [None]
